FAERS Safety Report 20569214 (Version 2)
Quarter: 2022Q2

REPORT INFORMATION
  Report Type: Report from Study
  Country: ES (occurrence: ES)
  Receive Date: 20220308
  Receipt Date: 20220411
  Transmission Date: 20220721
  Serious: Yes (Hospitalization, Other)
  Sender: FDA-Public Use
  Company Number: ES-BRISTOL-MYERS SQUIBB COMPANY-BMS-2022-029226

PATIENT
  Age: 79 Year
  Sex: Female
  Weight: 62 kg

DRUGS (25)
  1. HUMAX-IL8 [Suspect]
     Active Substance: HUMAX-IL8
     Indication: Malignant melanoma
     Dosage: 3600 MILLIGRAM
     Route: 065
     Dates: start: 20211103, end: 20211103
  2. HUMAX-IL8 [Suspect]
     Active Substance: HUMAX-IL8
     Dosage: 3600 MILLIGRAM
     Route: 065
     Dates: start: 20211229, end: 20211229
  3. NIVOLUMAB [Suspect]
     Active Substance: NIVOLUMAB
     Indication: Malignant melanoma
     Dosage: 63 MILLIGRAM
     Route: 065
     Dates: start: 20211103, end: 20211103
  4. NIVOLUMAB [Suspect]
     Active Substance: NIVOLUMAB
     Dosage: 63 MILLIGRAM
     Route: 065
     Dates: start: 20211229, end: 20211229
  5. IPILIMUMAB [Suspect]
     Active Substance: IPILIMUMAB
     Indication: Malignant melanoma
     Dosage: 190 MILLIGRAM
     Route: 065
     Dates: start: 20211103, end: 20211103
  6. IPILIMUMAB [Suspect]
     Active Substance: IPILIMUMAB
     Dosage: 190 MILLIGRAM
     Route: 065
     Dates: start: 20211229, end: 20211229
  7. NIVOLUMAB [Suspect]
     Active Substance: NIVOLUMAB
     Dosage: 63 MILLIGRAM
     Route: 065
     Dates: start: 20211229, end: 20211229
  8. LORAZEPAM [Concomitant]
     Active Substance: LORAZEPAM
     Indication: Product used for unknown indication
     Dosage: 1 MILLIGRAM
     Route: 048
     Dates: start: 20210101
  9. DIETARY SUPPLEMENT [Concomitant]
     Active Substance: DIETARY SUPPLEMENT
     Indication: Product used for unknown indication
     Route: 048
     Dates: start: 20141001
  10. DEXCHLORPHENIRAMINE [Concomitant]
     Active Substance: DEXCHLORPHENIRAMINE
     Indication: Product used for unknown indication
     Dosage: 5 MILLIGRAM
     Route: 048
     Dates: start: 20211117
  11. CELECOXIB [Concomitant]
     Active Substance: CELECOXIB
     Indication: Product used for unknown indication
     Dosage: 200 MILLIGRAM
     Route: 048
     Dates: start: 20211209
  12. OLMESARTAN [Concomitant]
     Active Substance: OLMESARTAN
     Indication: Product used for unknown indication
     Dosage: 20 MILLIGRAM
     Route: 048
     Dates: start: 20211001
  13. BISOPROLOL FUMARATE\HYDROCHLOROTHIAZIDE [Concomitant]
     Active Substance: BISOPROLOL FUMARATE\HYDROCHLOROTHIAZIDE
     Indication: Product used for unknown indication
     Dosage: 10 MILLIGRAM
     Route: 048
     Dates: start: 20011001
  14. CHOLECALCIFEROL [Concomitant]
     Active Substance: CHOLECALCIFEROL
     Indication: Product used for unknown indication
     Dosage: 25.000 UNIT NOS
     Route: 048
     Dates: start: 20191001
  15. LEVOTHYROXINE [Concomitant]
     Active Substance: LEVOTHYROXINE
     Indication: Adverse event
     Dosage: 50 (UNIT NOT PROVIDED)
     Route: 048
     Dates: start: 20220218
  16. ACETAMINOPHEN [Concomitant]
     Active Substance: ACETAMINOPHEN
     Indication: Product used for unknown indication
     Dosage: 1 GRAM
     Route: 048
     Dates: start: 20211001
  17. BILASTIN [Concomitant]
     Indication: Product used for unknown indication
     Dosage: 20 MILLIGRAM
     Route: 048
     Dates: start: 20211001
  18. MELATONIN;TRYPTOPHAN, L- [Concomitant]
     Indication: Product used for unknown indication
     Dosage: 1.96 MILLIGRAM
     Route: 048
     Dates: start: 20201001
  19. PENTOSAN POLYSULFATE SODIUM [Concomitant]
     Active Substance: PENTOSAN POLYSULFATE SODIUM
     Indication: Product used for unknown indication
     Dosage: 1 MILLIGRAM
     Route: 061
     Dates: start: 20211001
  20. BETAMETHASONE DIPROPIONATE\GENTAMICIN SULFATE [Concomitant]
     Active Substance: BETAMETHASONE DIPROPIONATE\GENTAMICIN SULFATE
     Indication: Product used for unknown indication
     Dosage: 1 GRAM
     Route: 061
     Dates: start: 20211117
  21. METHIMAZOLE [Concomitant]
     Active Substance: METHIMAZOLE
     Indication: Product used for unknown indication
     Dosage: 10 MILLIGRAM
     Route: 048
     Dates: start: 20211215
  22. PREDNISONE [Concomitant]
     Active Substance: PREDNISONE
     Indication: Product used for unknown indication
     Dosage: 10 MILLIGRAM
     Route: 048
     Dates: start: 20211221
  23. CRANBERRY [Concomitant]
     Active Substance: CRANBERRY
     Indication: Product used for unknown indication
     Route: 048
     Dates: start: 20201001
  24. PROBIOTICS NOS [Concomitant]
     Active Substance: PROBIOTICS NOS
     Indication: Product used for unknown indication
     Route: 048
     Dates: start: 20201001
  25. OSCILLOCOCCINUM [Concomitant]
     Active Substance: CAIRINA MOSCHATA HEART/LIVER AUTOLYSATE
     Indication: Product used for unknown indication
     Route: 048
     Dates: start: 20141001

REACTIONS (1)
  - Colitis [Recovered/Resolved]

NARRATIVE: CASE EVENT DATE: 20220224
